FAERS Safety Report 7542606-7 (Version None)
Quarter: 2011Q2

REPORT INFORMATION
  Report Type: 
  Country: None (occurrence: None)
  Receive Date: 20110613
  Receipt Date: 20110602
  Transmission Date: 20111010
  Serious: Yes (Hospitalization)
  Sender: FDA-Public Use
  Company Number: US-ROCHE-781309

PATIENT
  Age: 40 Year

DRUGS (5)
  1. OXALIPLATIN [Suspect]
     Dosage: TWO TIMES ON TWO SEPARATE COURSE OF TREATMENT
     Route: 065
  2. IRINOTECAN HYDROCHLORIDE [Suspect]
     Route: 065
  3. FLUOROURACIL [Suspect]
     Dosage: TWO TIMES ON TWO SEPARATE COURSE OF TREATMENT
     Route: 065
  4. AVASTIN [Suspect]
     Dosage: LAST 2TWO YEARS RECEIVED 45 CYCLES
     Route: 065
  5. LEUCOVORIN CALCIUM [Suspect]
     Dosage: TWO TIMES ON TWO SEPARATE COURSE OF TREATMENT
     Route: 065

REACTIONS (1)
  - RENAL IMPAIRMENT [None]
